FAERS Safety Report 9593183 (Version 1)
Quarter: 2013Q3

REPORT INFORMATION
  Report Type: Spontaneous
  Country: US (occurrence: None)
  Receive Date: 20130930
  Receipt Date: 20130930
  Transmission Date: 20140515
  Serious: No
  Sender: FDA-Public Use
  Company Number: 1000046640

PATIENT
  Age: 90 Year
  Sex: Female

DRUGS (5)
  1. LINZESS (LINACLOTIDE) (145 MICROGRAM, CAPSULES) [Suspect]
     Indication: IRRITABLE BOWEL SYNDROME
     Dosage: 145 MCG (145 MCG), ORAL
     Route: 048
     Dates: start: 201306
  2. FUROSEMIDE [Concomitant]
  3. LOSARTAN (LOSARTAN) (LOSARTAN) [Concomitant]
  4. ATENOLOL (ATENOLOL) (ATENOLOL) [Concomitant]
  5. POTASSIUM (POTASSIUM) (POTASSIUM) [Concomitant]

REACTIONS (9)
  - Diarrhoea [None]
  - Anorectal discomfort [None]
  - Fatigue [None]
  - Feeling hot [None]
  - Erythema [None]
  - Blood pressure decreased [None]
  - Dehydration [None]
  - Pruritus [None]
  - Hypoaesthesia [None]
